FAERS Safety Report 4509008-9 (Version None)
Quarter: 2004Q4

REPORT INFORMATION
  Report Type: 
  Country: None (occurrence: None)
  Receive Date: 20041123
  Receipt Date: 20041112
  Transmission Date: 20050328
  Serious: Yes (Hospitalization)
  Sender: FDA-Public Use
  Company Number: IT-BRISTOL-MYERS SQUIBB COMPANY-12766507

PATIENT
  Age: 68 Year
  Sex: Female

DRUGS (2)
  1. DAIVONEX [Suspect]
     Indication: PSORIASIS
     Route: 061
     Dates: start: 20040910, end: 20041010
  2. DAIVOBET [Concomitant]
     Indication: PSORIASIS
     Route: 061
     Dates: start: 20040910, end: 20041010

REACTIONS (1)
  - ECZEMA [None]
